FAERS Safety Report 15363097 (Version 1)
Quarter: 2018Q3

REPORT INFORMATION
  Report Type: Spontaneous
  Country: US (occurrence: US)
  Receive Date: 20180907
  Receipt Date: 20180907
  Transmission Date: 20181010
  Serious: Yes (Other)
  Sender: FDA-Public Use
  Company Number: US-BAYER-2018-166105

PATIENT
  Sex: Female

DRUGS (1)
  1. MAGNEVIST [Suspect]
     Active Substance: GADOPENTETATE DIMEGLUMINE
     Indication: NUCLEAR MAGNETIC RESONANCE IMAGING
     Dosage: UNK UNK, ONCE

REACTIONS (8)
  - Skin fibrosis [None]
  - Anxiety [Not Recovered/Not Resolved]
  - Fibrosis [None]
  - Emotional distress [Not Recovered/Not Resolved]
  - Blood brain barrier defect [None]
  - Injury [None]
  - Gadolinium deposition disease [None]
  - Pain [None]
